FAERS Safety Report 6695905-5 (Version None)
Quarter: 2010Q2

REPORT INFORMATION
  Report Type: 
  Country: None (occurrence: None)
  Receive Date: 20100426
  Receipt Date: 20100412
  Transmission Date: 20101027
  Serious: Yes (Death)
  Sender: FDA-Public Use
  Company Number: ES-ELI_LILLY_AND_COMPANY-ES201004003025

PATIENT
  Sex: Male
  Weight: 50 kg

DRUGS (10)
  1. FORTEO [Suspect]
     Indication: OSTEOPOROSIS
     Dosage: 20 UG, DAILY (1/D)
     Route: 058
     Dates: start: 20090127
  2. BEGLAN [Concomitant]
     Dosage: UNK, UNKNOWN
     Route: 065
  3. SPIRIVA [Concomitant]
     Dosage: UNK, UNKNOWN
     Route: 065
  4. CALCIO [Concomitant]
     Dosage: UNK, UNKNOWN
     Route: 065
  5. ACFOL [Concomitant]
     Dosage: UNK, UNKNOWN
     Route: 065
  6. SEGURIL [Concomitant]
     Dosage: UNK, UNKNOWN
     Route: 065
  7. URBASON /00049601/ [Concomitant]
     Dosage: UNK, UNKNOWN
     Route: 065
  8. DIGOXIN [Concomitant]
     Dosage: UNK, UNKNOWN
     Route: 065
  9. DACORTIN [Concomitant]
     Dosage: UNK, UNKNOWN
     Route: 065
  10. ASPIRIN [Concomitant]
     Dosage: 100 D/F, UNKNOWN
     Route: 065

REACTIONS (1)
  - RESPIRATORY DISORDER [None]
